FAERS Safety Report 7809590-X (Version None)
Quarter: 2011Q4

REPORT INFORMATION
  Report Type: 
  Country: None (occurrence: None)
  Receive Date: 20111012
  Receipt Date: 20111005
  Transmission Date: 20120403
  Serious: Yes (Hospitalization)
  Sender: FDA-Public Use
  Company Number: FR-MERCK-1110FRA00034

PATIENT
  Age: 41 Year
  Sex: Male
  Weight: 74 kg

DRUGS (5)
  1. METFORMIN HCL [Suspect]
     Route: 048
     Dates: start: 20100602, end: 20101228
  2. METFORMIN HCL [Suspect]
     Route: 048
     Dates: start: 20101229
  3. ROSUVASTATIN CALCIUM [Concomitant]
     Route: 065
     Dates: start: 20070510
  4. JANUVIA [Suspect]
     Indication: TYPE 2 DIABETES MELLITUS
     Route: 048
     Dates: start: 20100301, end: 20101228
  5. METFORMIN HCL [Suspect]
     Indication: TYPE 2 DIABETES MELLITUS
     Route: 048
     Dates: start: 20100301, end: 20100601

REACTIONS (1)
  - INFLAMMATORY BOWEL DISEASE [None]
